FAERS Safety Report 10201505 (Version 2)
Quarter: 2015Q1

REPORT INFORMATION
  Report Type: Spontaneous
  Country: US (occurrence: US)
  Receive Date: 20140528
  Receipt Date: 20150116
  Transmission Date: 20150720
  Serious: Yes (Congenital Anomaly, Other)
  Sender: FDA-Public Use
  Company Number: US-ELI_LILLY_AND_COMPANY-US201405006866

PATIENT

DRUGS (2)
  1. PROZAC [Suspect]
     Active Substance: FLUOXETINE HYDROCHLORIDE
     Indication: PRODUCT USED FOR UNKNOWN INDICATION
  2. HEPARIN SODIUM. [Concomitant]
     Active Substance: HEPARIN SODIUM
     Indication: PRODUCT USED FOR UNKNOWN INDICATION

REACTIONS (5)
  - Pulmonary valve incompetence [Unknown]
  - Foetal exposure during pregnancy [Unknown]
  - Dilatation ventricular [Unknown]
  - Tricuspid valve incompetence [Unknown]
  - Fallot^s tetralogy [Unknown]

NARRATIVE: CASE EVENT DATE: 20070413
